FAERS Safety Report 5905903-4 (Version None)
Quarter: 2008Q4

REPORT INFORMATION
  Report Type: 
  Country: None (occurrence: None)
  Receive Date: 20081002
  Receipt Date: 20080922
  Transmission Date: 20090506
  Serious: Yes (Hospitalization)
  Sender: FDA-Public Use
  Company Number: US-ABBOTT-08P-163-0473658-00

PATIENT
  Sex: Male
  Weight: 67.192 kg

DRUGS (2)
  1. RITONAVIR SOFT GELATIN CAPSULES [Suspect]
     Indication: HIV INFECTION
     Route: 048
     Dates: start: 20080815
  2. DARUNAVIR [Concomitant]
     Indication: HIV INFECTION
     Route: 048
     Dates: start: 20080815

REACTIONS (1)
  - PNEUMONIA [None]
